FAERS Safety Report 12587465 (Version 5)
Quarter: 2016Q3

REPORT INFORMATION
  Report Type: Spontaneous
  Country: JP (occurrence: JP)
  Receive Date: 20160725
  Receipt Date: 20160817
  Transmission Date: 20161109
  Serious: Yes (Death, Other)
  Sender: FDA-Public Use
  Company Number: JP-PFIZER INC-2016352104

PATIENT
  Age: 85 Year
  Sex: Male

DRUGS (12)
  1. TULOBUTEROL [Suspect]
     Active Substance: TULOBUTEROL
     Dosage: UNK
     Route: 046
     Dates: start: 20160706, end: 20160707
  2. DAIKENCHUTO [Suspect]
     Active Substance: HERBALS
     Dosage: 7.5 G, DAILY
     Route: 048
     Dates: start: 20160705, end: 20160707
  3. ZOSYN [Suspect]
     Active Substance: PIPERACILLIN SODIUM\TAZOBACTAM SODIUM
     Indication: PNEUMONIA
     Dosage: 4.5 G, 1X/DAY
     Route: 041
     Dates: start: 20160705, end: 20160707
  4. BIO-THREE [Suspect]
     Active Substance: HERBALS
     Dosage: UNK
     Route: 048
     Dates: start: 20160705, end: 20160707
  5. BAYASPIRIN [Suspect]
     Active Substance: ASPIRIN
     Dosage: 100 MG, DAILY
     Route: 048
     Dates: start: 20160705, end: 20160707
  6. FERROUS CITRATE SODIUM [Suspect]
     Active Substance: SODIUM FERROUS CITRATE
     Dosage: UNK
     Route: 048
     Dates: start: 20160705, end: 20160707
  7. MOSAPRIDE CITRATE HYDRATE [Suspect]
     Active Substance: MOSAPRIDE CITRATE DIHYDRATE
     Dosage: 15 MG, DAILY
     Route: 048
     Dates: start: 20160705, end: 20160707
  8. MAGMITT [Suspect]
     Active Substance: MAGNESIUM OXIDE
     Dosage: 2250 MG, DAILY
     Route: 048
     Dates: start: 20160705, end: 20160707
  9. SYMBICORT [Suspect]
     Active Substance: BUDESONIDE\FORMOTEROL FUMARATE DIHYDRATE
     Dosage: UNK
     Route: 055
     Dates: start: 20160705
  10. VERAPAMIL HYDROCHLORIDE. [Suspect]
     Active Substance: VERAPAMIL HYDROCHLORIDE
     Dosage: 120 MG, DAILY
     Route: 048
     Dates: start: 20160705, end: 20160707
  11. ISOSORBIDE DINITRATE. [Suspect]
     Active Substance: ISOSORBIDE DINITRATE
     Dosage: 40 MG, DAILY
     Route: 046
     Dates: start: 20160705, end: 20160707
  12. FAMOTIDINE OD [Suspect]
     Active Substance: FAMOTIDINE
     Dosage: 20 MG, DAILY
     Route: 048
     Dates: start: 20160705, end: 20160707

REACTIONS (2)
  - Portal vein occlusion [Fatal]
  - Hepatic function abnormal [Fatal]

NARRATIVE: CASE EVENT DATE: 20160705
